FAERS Safety Report 26154714 (Version 1)
Quarter: 2025Q4

REPORT INFORMATION
  Report Type: Spontaneous
  Country: JP (occurrence: JP)
  Receive Date: 20251215
  Receipt Date: 20251215
  Transmission Date: 20260118
  Serious: Yes (Hospitalization)
  Sender: Haleon PLC
  Company Number: JP-002147023-NVSJ2025JP011696

PATIENT
  Age: 83 Year
  Sex: Male

DRUGS (5)
  1. VOLTAREN [Suspect]
     Active Substance: DICLOFENAC SODIUM
     Indication: Compression fracture
     Dosage: UNK
  2. LOXOPROFEN SODIUM [Suspect]
     Active Substance: LOXOPROFEN SODIUM
     Indication: Compression fracture
     Dosage: UNK
  3. LORNOXICAM [Suspect]
     Active Substance: LORNOXICAM
     Indication: Compression fracture
     Dosage: UNK
     Route: 065
  4. VOLTAREN [Suspect]
     Active Substance: DICLOFENAC SODIUM
     Indication: Compression fracture
     Dosage: UNK
  5. AZACITIDINE [Concomitant]
     Active Substance: AZACITIDINE
     Indication: Chronic myelomonocytic leukaemia
     Dosage: UNK
     Route: 065

REACTIONS (10)
  - Peritonitis [Recovering/Resolving]
  - Abdominal pain lower [Unknown]
  - Abdominal rebound tenderness [Unknown]
  - Intestinal dilatation [Unknown]
  - Haematochezia [Unknown]
  - Abdominal distension [Unknown]
  - Ascites [Unknown]
  - Gastrointestinal ulcer [Unknown]
  - Malaise [Unknown]
  - C-reactive protein increased [Unknown]
